FAERS Safety Report 8473939-8 (Version None)
Quarter: 2012Q2

REPORT INFORMATION
  Report Type: 
  Country: None (occurrence: None)
  Receive Date: 20120628
  Receipt Date: 20120301
  Transmission Date: 20120825
  Serious: Yes (Death)
  Sender: FDA-Public Use
  Company Number: US-MYLANLABS-2012S1003408

PATIENT
  Age: 84 Year
  Sex: Male

DRUGS (8)
  1. CLOZAPINE [Suspect]
     Indication: DEMENTIA
     Route: 048
  2. METHYLPHENIDATE [Concomitant]
     Dates: start: 20090208, end: 20120130
  3. OMEPRAZOLE [Concomitant]
     Dates: start: 20090208, end: 20120130
  4. CARVEDILOL [Concomitant]
     Dates: start: 20090208, end: 20120130
  5. RIVASTIGMINE [Concomitant]
     Dates: start: 20081123, end: 20120130
  6. CARBIDOPA AND LEVODOPA [Concomitant]
     Dates: start: 20081123, end: 20120130
  7. NAMENDA [Concomitant]
     Dates: start: 20090208, end: 20120130
  8. LISINOPRIL [Concomitant]
     Dates: start: 20090208, end: 20120130

REACTIONS (1)
  - DEATH [None]
